FAERS Safety Report 18112167 (Version 2)
Quarter: 2020Q3

REPORT INFORMATION
  Report Type: Report from Study
  Country: US (occurrence: US)
  Receive Date: 20200805
  Receipt Date: 20200923
  Transmission Date: 20201103
  Serious: No
  Sender: FDA-Public Use
  Company Number: US-SA-2020SA203242

PATIENT

DRUGS (4)
  1. DUPILUMAB [Suspect]
     Active Substance: DUPILUMAB
     Dosage: 300 MG, QOW
     Route: 058
     Dates: start: 2020
  2. RAPAMUNE [Concomitant]
     Active Substance: SIROLIMUS
  3. TACROLIMUS. [Concomitant]
     Active Substance: TACROLIMUS
  4. DUPILUMAB [Suspect]
     Active Substance: DUPILUMAB
     Dosage: 600 MG, 1X
     Route: 058
     Dates: start: 20200715, end: 20200715

REACTIONS (5)
  - Pruritus [Unknown]
  - Skin disorder [Unknown]
  - Off label use [Unknown]
  - Condition aggravated [Unknown]
  - Stent placement [Unknown]

NARRATIVE: CASE EVENT DATE: 2020
